FAERS Safety Report 5594638-6 (Version None)
Quarter: 2008Q1

REPORT INFORMATION
  Report Type: 
  Country: None (occurrence: None)
  Receive Date: 20080117
  Receipt Date: 20080114
  Transmission Date: 20080703
  Serious: Yes (Hospitalization)
  Sender: FDA-Public Use
  Company Number: FR-AVENTIS-200810191FR

PATIENT
  Age: 72 Year
  Sex: Male

DRUGS (7)
  1. LASILIX                            /00032601/ [Suspect]
     Route: 048
     Dates: start: 20070818, end: 20070907
  2. ZESTRIL [Suspect]
     Route: 048
     Dates: start: 20030101
  3. TAHOR [Concomitant]
  4. ZYLORIC [Concomitant]
  5. VALIUM [Concomitant]
  6. EQUANIL [Concomitant]
  7. SINTROM [Concomitant]

REACTIONS (3)
  - DRUG INTERACTION [None]
  - HYPERKALAEMIA [None]
  - RENAL FAILURE [None]
